FAERS Safety Report 14465411 (Version 1)
Quarter: 2018Q1

REPORT INFORMATION
  Report Type: Other
  Country: US (occurrence: US)
  Receive Date: 20180131
  Receipt Date: 20180131
  Transmission Date: 20180509
  Serious: Yes (Hospitalization)
  Sender: FDA-Public Use
  Company Number: US-ACORDA-ACO_137061_2017

PATIENT
  Age: 69 Year
  Sex: Male

DRUGS (6)
  1. AMPYRA [Suspect]
     Active Substance: DALFAMPRIDINE
     Indication: NYSTAGMUS
     Dosage: 10 MG, QD
     Route: 048
  2. AMPYRA [Suspect]
     Active Substance: DALFAMPRIDINE
     Indication: SPINOCEREBELLAR ATAXIA
     Dosage: 10 MG, Q 12 HRS
     Route: 048
     Dates: start: 20170727
  3. MEXILETINE HCL [Concomitant]
     Active Substance: MEXILETINE HYDROCHLORIDE
     Indication: NEUROPATHY PERIPHERAL
     Dosage: 150 MG, QD
     Route: 048
     Dates: start: 20160816
  4. PRAVASTATIN. [Concomitant]
     Active Substance: PRAVASTATIN
     Indication: DYSLIPIDAEMIA
     Dosage: 40 MG, QD
     Route: 048
  5. GABAPENTIN. [Concomitant]
     Active Substance: GABAPENTIN
     Indication: NEUROPATHY PERIPHERAL
     Dosage: 300 MG, TID
     Route: 048
  6. AMPYRA [Suspect]
     Active Substance: DALFAMPRIDINE
     Indication: GAIT DISTURBANCE
     Dosage: 10 MG, BID (Q 12 HRS)
     Route: 048
     Dates: start: 20140902

REACTIONS (8)
  - Ataxia [Recovered/Resolved]
  - Dysarthria [Recovered/Resolved]
  - Inappropriate schedule of drug administration [Unknown]
  - Gait disturbance [Recovered/Resolved]
  - Gait inability [Recovered/Resolved]
  - Therapy cessation [Recovered/Resolved]
  - Off label use [Unknown]
  - Coordination abnormal [Not Recovered/Not Resolved]

NARRATIVE: CASE EVENT DATE: 20161026
